FAERS Safety Report 16732851 (Version 2)
Quarter: 2020Q2

REPORT INFORMATION
  Report Type: Spontaneous
  Country: US (occurrence: US)
  Receive Date: 20190823
  Receipt Date: 20200528
  Transmission Date: 20200713
  Serious: No
  Sender: FDA-Public Use
  Company Number: US-TEVA-2019-US-1097027

PATIENT
  Sex: Male

DRUGS (2)
  1. TESTOSTERONE GEL [Suspect]
     Active Substance: TESTOSTERONE
     Indication: HYPOGONADISM
     Dosage: MORNING BEFORE
     Route: 061
     Dates: start: 20180701
  2. TESTOSTERONE GEL [Suspect]
     Active Substance: TESTOSTERONE
     Dosage: DOSE: 50 MG/5 GRAM
     Dates: start: 20180728

REACTIONS (4)
  - Rash [Unknown]
  - Therapy interrupted [Unknown]
  - Product prescribing issue [Unknown]
  - Skin irritation [Unknown]

NARRATIVE: CASE EVENT DATE: 20190819
